FAERS Safety Report 9593457 (Version 1)
Quarter: 2013Q3

REPORT INFORMATION
  Report Type: Spontaneous
  Country: US (occurrence: None)
  Receive Date: 20130930
  Receipt Date: 20130930
  Transmission Date: 20140515
  Serious: No
  Sender: FDA-Public Use
  Company Number: 1000045992

PATIENT
  Age: 69 Year
  Sex: Female
  Weight: 41.73 kg

DRUGS (9)
  1. LINZESS (LINACLOTIDE) [Suspect]
     Indication: CONSTIPATION
     Dates: start: 201212
  2. MAGNESIUM CITRATE (MAGNESIUM CITRATE) [Concomitant]
     Indication: CONSTIPATION
     Route: 048
     Dates: start: 201305
  3. CO-ENZYME Q10 (UBIDECARENONE-)(UBIDECARENONE) [Concomitant]
  4. RESVERATROL (RESVERATROL) [Concomitant]
  5. CALCIUM [Concomitant]
  6. LEXAPRO (ESCITALOPRAM OXALATE) [Concomitant]
  7. ATIVAN (LORAZEPAM) [Concomitant]
  8. FENTANYL [Concomitant]
  9. DILAUDID (HYDROMORPHONE HYDROCHLORIDE) (HYDROMORPHONE HYDROCHLORIDE) [Concomitant]

REACTIONS (3)
  - Diarrhoea [None]
  - Weight decreased [None]
  - Off label use [None]
